FAERS Safety Report 4386805-4 (Version None)
Quarter: 2004Q2

REPORT INFORMATION
  Report Type: 
  Country: None (occurrence: None)
  Receive Date: 20040607
  Receipt Date: 20031003
  Transmission Date: 20050107
  Serious: Yes (Other)
  Sender: FDA-Public Use
  Company Number: 348469

PATIENT
  Age: 24 Year
  Sex: Female
  Weight: 86.2 kg

DRUGS (3)
  1. ACCUTANE [Suspect]
     Indication: ACNE
     Dosage: 40 MG 2 PER DAY ORAL
     Route: 048
     Dates: start: 20021115, end: 20021215
  2. DIFFERIN GEL (ADAPALENE) [Concomitant]
  3. MINOCYCLIN (MINOCYCLINE) [Concomitant]

REACTIONS (6)
  - ANXIETY [None]
  - COUGH [None]
  - CRYING [None]
  - DEPRESSION [None]
  - HEADACHE [None]
  - TREMOR [None]
